FAERS Safety Report 5303696-5 (Version None)
Quarter: 2007Q2

REPORT INFORMATION
  Report Type: 
  Country: None (occurrence: None)
  Receive Date: 20070420
  Receipt Date: 20070410
  Transmission Date: 20071010
  Serious: Yes (Hospitalization, Disabling, Other)
  Sender: FDA-Public Use
  Company Number: US-PFIZER INC-2006106352

PATIENT
  Sex: Female

DRUGS (2)
  1. CELEBREX [Suspect]
     Indication: PAIN
     Route: 048
     Dates: start: 20041014, end: 20041113
  2. BEXTRA [Suspect]
     Indication: PAIN
     Route: 048
     Dates: start: 20041104, end: 20041203

REACTIONS (2)
  - CEREBROVASCULAR ACCIDENT [None]
  - STENT PLACEMENT [None]
